FAERS Safety Report 13647039 (Version 1)
Quarter: 2017Q2

REPORT INFORMATION
  Report Type: Spontaneous
  Country: US (occurrence: US)
  Receive Date: 20170613
  Receipt Date: 20170613
  Transmission Date: 20170830
  Serious: Yes (Other)
  Sender: FDA-Public Use
  Company Number: US-LUPIN EUROPE LIMITED-2017-02843

PATIENT
  Age: 63 Year
  Sex: Female
  Weight: 82.86 kg

DRUGS (3)
  1. LISINOPRIL TABLETS USP, 10MG [Suspect]
     Active Substance: LISINOPRIL
     Indication: HYPERTENSION
     Dosage: 10 MG, QD (SMALLER TABLETS)
     Route: 048
  2. LISINOPRIL TABLETS USP, 10MG [Suspect]
     Active Substance: LISINOPRIL
     Dosage: 10 MG, QD (BIGGER TABLETS)
     Route: 048
     Dates: start: 20170425, end: 20170526
  3. LISINOPRIL TABLETS USP, 10MG [Suspect]
     Active Substance: LISINOPRIL
     Dosage: 10 MG, QD (SMALLER TABLETS)
     Route: 048

REACTIONS (1)
  - Transient ischaemic attack [Recovered/Resolved]

NARRATIVE: CASE EVENT DATE: 201705
